FAERS Safety Report 5607756-0 (Version None)
Quarter: 2008Q1

REPORT INFORMATION
  Report Type: 
  Country: None (occurrence: None)
  Receive Date: 20080130
  Receipt Date: 20080121
  Transmission Date: 20080703
  Serious: Yes (Other)
  Sender: FDA-Public Use
  Company Number: CA-JNJFOC-20071108532

PATIENT
  Sex: Male

DRUGS (1)
  1. DURAGESIC-100 [Suspect]
     Indication: PROCEDURAL PAIN
     Route: 062

REACTIONS (9)
  - ANGINA PECTORIS [None]
  - ANOREXIA [None]
  - BEDRIDDEN [None]
  - CONSTIPATION [None]
  - DEPRESSION [None]
  - IRRITABILITY [None]
  - NAUSEA [None]
  - SOMNOLENCE [None]
  - VOMITING [None]
